FAERS Safety Report 8161318-2 (Version None)
Quarter: 2012Q1

REPORT INFORMATION
  Report Type: 
  Country: None (occurrence: None)
  Receive Date: 20120224
  Receipt Date: 20120221
  Transmission Date: 20120608
  Serious: Yes (Other)
  Sender: FDA-Public Use
  Company Number: US-PFIZER INC-2011197745

PATIENT
  Sex: Female

DRUGS (2)
  1. CHANTIX [Suspect]
     Indication: SMOKING CESSATION THERAPY
     Dosage: STARTER PACK, CONTINUING MONTH PACK
     Dates: start: 20080306, end: 20080523
  2. EXCEDRIN (MIGRAINE) [Concomitant]
     Indication: MIGRAINE
     Dosage: UNK
     Dates: start: 20060101, end: 20110101

REACTIONS (5)
  - INSOMNIA [None]
  - IRRITABILITY [None]
  - ANGER [None]
  - ANXIETY [None]
  - DEPRESSION [None]
